FAERS Safety Report 6404545-4 (Version None)
Quarter: 2009Q4

REPORT INFORMATION
  Report Type: 
  Country: None (occurrence: None)
  Receive Date: 20091016
  Receipt Date: 20091005
  Transmission Date: 20100525
  Serious: Yes (Hospitalization, Disabling, Other)
  Sender: FDA-Public Use
  Company Number: PHHY2009AT42687

PATIENT
  Age: 67 Year
  Sex: Male

DRUGS (4)
  1. TASIGNA [Suspect]
     Dosage: 800 MG, UNK
     Dates: start: 20061201
  2. MARCUMAR [Concomitant]
     Indication: PERIPHERAL ARTERIAL OCCLUSIVE DISEASE
     Dosage: UNK
     Dates: start: 20090101
  3. ACEMIN [Concomitant]
     Indication: PERIPHERAL ARTERIAL OCCLUSIVE DISEASE
     Dosage: 5 MG, BID
     Dates: start: 20060101
  4. PLAVIX [Concomitant]
     Indication: PERIPHERAL ARTERIAL OCCLUSIVE DISEASE
     Dosage: 75 MG, BID
     Dates: start: 20090101

REACTIONS (4)
  - LEG AMPUTATION [None]
  - PERIPHERAL ARTERIAL OCCLUSIVE DISEASE [None]
  - VASCULAR GRAFT [None]
  - VASCULAR OPERATION [None]
